FAERS Safety Report 8805982 (Version 2)
Quarter: 2013Q2

REPORT INFORMATION
  Report Type: Spontaneous
  Country: PR (occurrence: None)
  Receive Date: 20120918
  Receipt Date: 20130401
  Transmission Date: 20140414
  Serious: Yes (Life-Threatening, Hospitalization)
  Sender: FDA-Public Use
  Company Number: 2012PR-004357

PATIENT
  Age: 58 Year
  Sex: Male
  Weight: 65 kg

DRUGS (21)
  1. OMONTYS (PEGINESATIDE) SOLUTION FOR INJECTION [Suspect]
     Indication: NEPHROGENIC ANAEMIA
     Dosage: 10 MG, Q 4 WEEKS, INTRAVENOUS
     Route: 042
     Dates: start: 20120828, end: 20120828
  2. EPOETIN ALFA [Concomitant]
  3. ZEMPLAR (PARICALCITOL) [Concomitant]
  4. VENOFER [Concomitant]
  5. CATAPRES (CLONIDINE) [Concomitant]
  6. IMDUR (ISOSORBIDE MONONITRATE) [Concomitant]
  7. PROTONIX (PANTOPRAZOLE SODIUM SESQUIHYDRATE) [Concomitant]
  8. COREG (CARVEDILOL) [Concomitant]
  9. ASPIRIN (ACETYLSALICYLIC ACID) [Concomitant]
  10. FERROUS SULFATE (FERROUS SULFATE) [Concomitant]
  11. NORVASC (AMLODIPINE BESILATE) [Concomitant]
  12. AVAPRO (IRBESARTAN) [Concomitant]
  13. CARDURA (DOXAZOSIN MESILATE) [Concomitant]
  14. INSULIN (INSULIN) [Concomitant]
  15. PANTOPRAZOLE (PANTOPRAZOLE) [Concomitant]
  16. LEVOTHYROXINE (LEVOTHYROXINE) [Concomitant]
  17. METOCLOPRAMIDE (METOCLOPRAMIDE) [Concomitant]
  18. PLAVIX (CLOPIDOGREL BISULFATE) [Concomitant]
  19. LIPITOR (ATORVASTATIN CALCIUM) [Concomitant]
  20. HEPARINN (HEPARIN) [Concomitant]
  21. LIQUACEL [Concomitant]

REACTIONS (9)
  - Anaphylactic reaction [None]
  - Myocardial infarction [None]
  - Cardio-respiratory arrest [None]
  - Unresponsive to stimuli [None]
  - Chest pain [None]
  - Feeling abnormal [None]
  - Nausea [None]
  - Vomiting [None]
  - Dyspnoea [None]
